FAERS Safety Report 24160442 (Version 1)
Quarter: 2024Q3

REPORT INFORMATION
  Report Type: Spontaneous
  Country: US (occurrence: US)
  Receive Date: 20240801
  Receipt Date: 20240801
  Transmission Date: 20241017
  Serious: Yes (Other)
  Sender: INFORLIFE
  Company Number: US-INFO-20240229

PATIENT

DRUGS (2)
  1. NOREPINEPHRINE [Suspect]
     Active Substance: NOREPINEPHRINE\NOREPINEPHRINE BITARTRATE
     Dosage: LOT# OF FIRST PRODUCT: B3075, EXPIRY DATE OF FIRST PRODUCT: 31-MAR-2025.? ()
     Route: 042
  2. NOREPINEPHRINE [Suspect]
     Active Substance: NOREPINEPHRINE\NOREPINEPHRINE BITARTRATE
     Dosage: LOT# AND EXPIRY DATE OF SECOND PRODUCT ARE NOT REPORTED. ()

REACTIONS (3)
  - Product packaging issue [Unknown]
  - Product container issue [Unknown]
  - No adverse event [Unknown]

NARRATIVE: CASE EVENT DATE: 20240621
